FAERS Safety Report 14332672 (Version 5)
Quarter: 2018Q3

REPORT INFORMATION
  Report Type: Spontaneous
  Country: DE (occurrence: DE)
  Receive Date: 20171228
  Receipt Date: 20180925
  Transmission Date: 20181010
  Serious: Yes (Other)
  Sender: FDA-Public Use
  Company Number: DE-PFIZER INC-2017547451

PATIENT
  Age: 56 Year
  Sex: Male

DRUGS (2)
  1. CYCLOSPORINE A [Suspect]
     Active Substance: CYCLOSPORINE
     Indication: PSORIASIS
  2. METHOTREXATE SODIUM. [Suspect]
     Active Substance: METHOTREXATE SODIUM
     Indication: PSORIASIS
     Dosage: (SYSTEMIC TREATMENT)

REACTIONS (3)
  - Keratoacanthoma [Unknown]
  - Blood pressure increased [Unknown]
  - Drug ineffective [Unknown]
